FAERS Safety Report 24600531 (Version 1)
Quarter: 2024Q4

REPORT INFORMATION
  Report Type: Spontaneous
  Country: FR (occurrence: FR)
  Receive Date: 20241110
  Receipt Date: 20241110
  Transmission Date: 20250115
  Serious: Yes (Death, Other)
  Sender: ALEXION PHARMACEUTICALS
  Company Number: FR-AstraZeneca-CH-00733436A

PATIENT
  Age: 62 Year

DRUGS (4)
  1. DURVALUMAB [Suspect]
     Active Substance: DURVALUMAB
     Indication: Bile duct cancer
     Dosage: UNK
  2. DURVALUMAB [Suspect]
     Active Substance: DURVALUMAB
     Dosage: UNK
  3. DURVALUMAB [Suspect]
     Active Substance: DURVALUMAB
     Dosage: UNK
  4. DURVALUMAB [Suspect]
     Active Substance: DURVALUMAB
     Dosage: UNK

REACTIONS (1)
  - Gastrointestinal haemorrhage [Fatal]
